FAERS Safety Report 6498744-3 (Version None)
Quarter: 2009Q4

REPORT INFORMATION
  Report Type: 
  Country: None (occurrence: None)
  Receive Date: 20091215
  Receipt Date: 20091209
  Transmission Date: 20100525
  Serious: Yes (Hospitalization)
  Sender: FDA-Public Use
  Company Number: IE-ROCHE-671252

PATIENT
  Sex: Female
  Weight: 68.5 kg

DRUGS (7)
  1. BEVACIZUMAB [Suspect]
     Indication: BREAST CANCER
     Dosage: MOST RECENT DOSE: 19 NOVEMBER 2009, FREQUENCY NOT REPORTED.
     Route: 042
     Dates: start: 20090716
  2. BEVACIZUMAB [Suspect]
     Dosage: CYCLE 8.
     Route: 042
     Dates: start: 20091210
  3. EMCOR [Suspect]
     Indication: DRUG USE FOR UNKNOWN INDICATION
     Route: 048
     Dates: start: 20050101
  4. ARIMIDEX [Suspect]
     Indication: DRUG USE FOR UNKNOWN INDICATION
     Route: 048
     Dates: start: 20091008
  5. PIRITON [Concomitant]
     Route: 048
     Dates: start: 20090910
  6. LIPITOR [Concomitant]
     Route: 048
     Dates: start: 20070101
  7. IDEOS [Concomitant]
     Dosage: DOSE NOT LEGIBLE
     Route: 048
     Dates: start: 20040101

REACTIONS (2)
  - CELLULITIS [None]
  - LYMPHOEDEMA [None]
